FAERS Safety Report 6535328-2 (Version None)
Quarter: 2010Q1

REPORT INFORMATION
  Report Type: 
  Country: None (occurrence: None)
  Receive Date: 20100111
  Receipt Date: 20100111
  Transmission Date: 20100710
  Serious: No
  Sender: FDA-Public Use
  Company Number: None

PATIENT
  Age: 41 Year
  Sex: Female
  Weight: 79.3795 kg

DRUGS (2)
  1. ZICAM COLD REMEDY HOMEOPATHIC GEL NASAL GEL TECH, LLC [Suspect]
     Indication: NASOPHARYNGITIS
     Dosage: 1 PUMP TO EACH NASAL OPENING REPEAT Q 2-4 HRS NASAL
     Route: 045
     Dates: start: 20030307, end: 20030308
  2. ZICAM COLD REMEDY ORAL MIST MATRIX INITIATIVES, INC [Suspect]
     Indication: NASOPHARYNGITIS
     Dosage: SPRAY 4X'S AND HOLD 15 SECS REPEAT Q 3 HRS BUCCAL
     Route: 002
     Dates: start: 20070510, end: 20070512

REACTIONS (2)
  - HYPOSMIA [None]
  - PAROSMIA [None]
